FAERS Safety Report 25514914 (Version 3)
Quarter: 2025Q4

REPORT INFORMATION
  Report Type: Spontaneous
  Country: US (occurrence: US)
  Receive Date: 20250703
  Receipt Date: 20251212
  Transmission Date: 20260117
  Serious: Yes (Other)
  Sender: RADIUS PHARM
  Company Number: US-RADIUS HEALTH INC.-2024US002208

PATIENT
  Age: 73 Year
  Sex: Female
  Weight: 56 kg

DRUGS (3)
  1. TYMLOS [Suspect]
     Active Substance: ABALOPARATIDE
     Indication: Product used for unknown indication
     Dosage: 40 MICROGRAM, QD
     Route: 065
     Dates: start: 20240218
  2. TYMLOS [Suspect]
     Active Substance: ABALOPARATIDE
     Dosage: 5 CLICKS DAILY (QD)
     Route: 065
     Dates: start: 202402
  3. TYMLOS [Suspect]
     Active Substance: ABALOPARATIDE
     Dosage: 80 MICROGRAM, QD
     Route: 065

REACTIONS (20)
  - Lipoedema [Not Recovered/Not Resolved]
  - Blood cholesterol increased [Unknown]
  - Alopecia [Recovered/Resolved]
  - Weight increased [Unknown]
  - Dyspepsia [Unknown]
  - Peripheral swelling [Not Recovered/Not Resolved]
  - Adverse drug reaction [Unknown]
  - Rash erythematous [Unknown]
  - Back pain [Recovered/Resolved]
  - Malaise [Unknown]
  - Insomnia [Unknown]
  - Headache [Unknown]
  - Palpitations [Unknown]
  - Constipation [Unknown]
  - Abdominal distension [Unknown]
  - Fatigue [Unknown]
  - Pain in extremity [Not Recovered/Not Resolved]
  - Bone pain [Not Recovered/Not Resolved]
  - Intentional dose omission [Recovered/Resolved]
  - Intentional product misuse [Recovered/Resolved]

NARRATIVE: CASE EVENT DATE: 20240101
